FAERS Safety Report 20814117 (Version 1)
Quarter: 2022Q2

REPORT INFORMATION
  Report Type: Spontaneous
  Country: US (occurrence: None)
  Receive Date: 20220510
  Receipt Date: 20220510
  Transmission Date: 20220721
  Serious: Yes (Life-Threatening, Other)
  Sender: FDA-Public Use
  Company Number: None

PATIENT
  Age: 83 Year
  Sex: Male

DRUGS (6)
  1. METOLAZONE [Suspect]
     Active Substance: METOLAZONE
     Dosage: OTHER FREQUENCY : THREE TIMES WEEKLY;?
     Route: 048
     Dates: start: 20220504, end: 20220510
  2. HYDROCHLOROTHIAZIDE [Concomitant]
     Active Substance: HYDROCHLOROTHIAZIDE
     Dates: start: 20220429
  3. LISINOPRIL [Concomitant]
     Active Substance: LISINOPRIL
     Dates: start: 20210908
  4. ELIQUIS [Concomitant]
     Active Substance: APIXABAN
     Dates: start: 20220429
  5. LABETALOL [Concomitant]
     Active Substance: LABETALOL\LABETALOL HYDROCHLORIDE
     Dates: start: 20220429
  6. METFORMIN [Concomitant]
     Active Substance: METFORMIN HYDROCHLORIDE
     Dates: start: 20220425

REACTIONS (3)
  - Hypokalaemia [None]
  - Tachycardia [None]
  - Wrong patient received product [None]
